FAERS Safety Report 8163969-8 (Version None)
Quarter: 2012Q1

REPORT INFORMATION
  Report Type: 
  Country: None (occurrence: None)
  Receive Date: 20120224
  Receipt Date: 20120213
  Transmission Date: 20120608
  Serious: Yes (Hospitalization, Other)
  Sender: FDA-Public Use
  Company Number: FR-ACTELION-A-CH2012-60293

PATIENT
  Sex: Male
  Weight: 90 kg

DRUGS (9)
  1. TRACLEER [Suspect]
     Indication: PULMONARY ARTERIAL HYPERTENSION
     Dosage: 125 MG, BID
     Route: 048
     Dates: start: 20071201, end: 20111215
  2. REVATIO [Suspect]
     Indication: PRODUCT USED FOR UNKNOWN INDICATION
     Dosage: 20 MG, TID
     Route: 048
     Dates: start: 20110113
  3. DILTIAZEM HCL [Concomitant]
  4. TRACLEER [Suspect]
     Dosage: 62.5 MG, BID
     Route: 048
     Dates: start: 20071116, end: 20071201
  5. CRESTOR [Concomitant]
  6. ASPIRIN [Concomitant]
  7. LEVOTHYROXINE SODIUM [Concomitant]
  8. PREVISCAN [Concomitant]
  9. ALDALIX [Concomitant]

REACTIONS (5)
  - DRUG INTERACTION [None]
  - ASPARTATE AMINOTRANSFERASE INCREASED [None]
  - ALANINE AMINOTRANSFERASE INCREASED [None]
  - CYTOLYTIC HEPATITIS [None]
  - TRANSAMINASES INCREASED [None]
